FAERS Safety Report 24882933 (Version 2)
Quarter: 2025Q1

REPORT INFORMATION
  Report Type: Report from Study
  Country: US (occurrence: US)
  Receive Date: 20250124
  Receipt Date: 20250304
  Transmission Date: 20250409
  Serious: No
  Sender: SANDOZ
  Company Number: US-SANDOZ-SDZ2025US004228

PATIENT
  Age: 12 Year
  Sex: Male

DRUGS (4)
  1. OMNITROPE [Suspect]
     Active Substance: SOMATROPIN
     Indication: Short stature
     Dosage: 1.8 MG, QD (2 DOSE EVERY)
     Route: 058
     Dates: start: 20250121
  2. OMNITROPE [Suspect]
     Active Substance: SOMATROPIN
     Indication: Short stature
     Dosage: 1.8 MG, QD (2 DOSE EVERY)
     Route: 058
     Dates: start: 20250121
  3. OMNITROPE [Suspect]
     Active Substance: SOMATROPIN
     Dosage: 1.8 MG, QD
     Route: 058
  4. OMNITROPE [Suspect]
     Active Substance: SOMATROPIN
     Dosage: 1.8 MG, QD
     Route: 058

REACTIONS (2)
  - Injection site haemorrhage [Not Recovered/Not Resolved]
  - Device leakage [Unknown]

NARRATIVE: CASE EVENT DATE: 20250121
